FAERS Safety Report 20016596 (Version 1)
Quarter: 2021Q4

REPORT INFORMATION
  Report Type: Spontaneous
  Country: US (occurrence: None)
  Receive Date: 20211104
  Receipt Date: 20211104
  Transmission Date: 20220303
  Serious: No
  Sender: FDA-Public Use
  Company Number: None

PATIENT
  Age: 74 Year
  Sex: Male
  Weight: 99 kg

DRUGS (3)
  1. SARS-COV-2 [Suspect]
     Active Substance: SARS-COV-2
     Indication: COVID-19 treatment
     Dates: start: 20211103, end: 20211103
  2. BAMLANIVIMAB [Concomitant]
     Active Substance: BAMLANIVIMAB
  3. etesivimab [Concomitant]

REACTIONS (5)
  - Infusion related reaction [None]
  - Erythema [None]
  - Back pain [None]
  - Nausea [None]
  - Chest discomfort [None]

NARRATIVE: CASE EVENT DATE: 20211103
